FAERS Safety Report 5238751-1 (Version None)
Quarter: 2007Q1

REPORT INFORMATION
  Report Type: 
  Country: None (occurrence: None)
  Receive Date: 20070215
  Receipt Date: 20070205
  Transmission Date: 20070707
  Serious: Yes (Disabling, Other)
  Sender: FDA-Public Use
  Company Number: FR-PFIZER INC-2007010215

PATIENT
  Age: 82 Year
  Sex: Male

DRUGS (6)
  1. LYRICA [Suspect]
     Indication: PAIN
     Dates: start: 20061207, end: 20061201
  2. PRETERAX [Concomitant]
  3. PREVISCAN [Concomitant]
  4. TADENAN [Concomitant]
  5. LASIX [Concomitant]
  6. PROZAC [Concomitant]

REACTIONS (2)
  - MUSCLE RIGIDITY [None]
  - WALKING DISABILITY [None]
